FAERS Safety Report 9473546 (Version 1)
Quarter: 2013Q3

REPORT INFORMATION
  Report Type: Spontaneous
  Country: US (occurrence: US)
  Receive Date: 20130823
  Receipt Date: 20130823
  Transmission Date: 20140515
  Serious: No
  Sender: FDA-Public Use
  Company Number: US-GALDERMA-US13001754

PATIENT
  Age: 41 Year
  Sex: Male
  Weight: 83 kg

DRUGS (7)
  1. METROGEL (METRONIDAZOLE) GEL, 1% [Suspect]
     Indication: ROSACEA
     Dosage: 1%
     Route: 061
     Dates: start: 201302
  2. METROGEL (METRONIDAZOLE) GEL, 1% [Suspect]
     Dosage: 1%
     Route: 061
     Dates: start: 2010
  3. CYTOMEL [Concomitant]
     Indication: HORMONE REPLACEMENT THERAPY
     Route: 048
  4. MINOCYCLINE [Concomitant]
     Indication: ROSACEA
     Route: 048
  5. EUCERIN DRY SKIN THERAPY MOISTURIZER [Concomitant]
     Indication: THERAPEUTIC SKIN CARE TOPICAL
     Route: 061
  6. DOVE SENSITIVE SKIN BAR SOAP [Concomitant]
     Indication: THERAPEUTIC SKIN CARE TOPICAL
     Route: 061
  7. ZYRTEC [Concomitant]
     Indication: SEASONAL ALLERGY
     Route: 048

REACTIONS (4)
  - Sticky skin [Not Recovered/Not Resolved]
  - Seborrhoea [Not Recovered/Not Resolved]
  - Drug ineffective [Not Recovered/Not Resolved]
  - Inappropriate schedule of drug administration [Not Recovered/Not Resolved]
